FAERS Safety Report 13770345 (Version 1)
Quarter: 2017Q3

REPORT INFORMATION
  Report Type: Spontaneous
  Country: US (occurrence: US)
  Receive Date: 20170719
  Receipt Date: 20170719
  Transmission Date: 20171127
  Serious: Yes (Other)
  Sender: FDA-Public Use
  Company Number: US-009507513-1707USA006673

PATIENT
  Sex: Female

DRUGS (2)
  1. NEOSTIGMINE METHYLSULFATE. [Concomitant]
     Active Substance: NEOSTIGMINE METHYLSULFATE
  2. BRIDION [Suspect]
     Active Substance: SUGAMMADEX

REACTIONS (1)
  - Seizure [Recovered/Resolved]
